FAERS Safety Report 15068322 (Version 1)
Quarter: 2018Q3

REPORT INFORMATION
  Report Type: Spontaneous
  Country: US (occurrence: US)
  Receive Date: 20180626
  Receipt Date: 20180626
  Transmission Date: 20181010
  Serious: No
  Sender: FDA-Public Use
  Company Number: US-ENDO PHARMACEUTICALS INC-2017-004561

PATIENT
  Sex: Female

DRUGS (1)
  1. MEFENAMIC ACID CAPSULES [Suspect]
     Active Substance: MEFENAMIC ACID
     Indication: DYSMENORRHOEA
     Dosage: UNK UNK, UNKNOWN
     Route: 065

REACTIONS (2)
  - Adverse event [Unknown]
  - Drug ineffective [Unknown]
